FAERS Safety Report 12532351 (Version 1)
Quarter: 2016Q3

REPORT INFORMATION
  Report Type: Spontaneous
  Country: US (occurrence: US)
  Receive Date: 20160706
  Receipt Date: 20160706
  Transmission Date: 20161109
  Serious: Yes (Hospitalization)
  Sender: FDA-Public Use
  Company Number: GXBR2016US002164

PATIENT
  Age: 67 Year
  Sex: Male
  Weight: 90.7 kg

DRUGS (5)
  1. INSULIN [Concomitant]
     Active Substance: INSULIN NOS
     Indication: DIABETES MELLITUS
     Route: 048
  2. AMOXICILLIN TRIHYDRATE W/DICLOXACIL/05138101/ [Concomitant]
     Indication: CELLULITIS
     Dosage: UNK DF, UNK
     Route: 048
  3. AMOXICILLIN TRIHYDRATE W/DICLOXACIL/05138101/ [Concomitant]
     Indication: FUNGAL INFECTION
  4. CLOTRIMAZOLE AND BETAMETHASONE [Suspect]
     Active Substance: BETAMETHASONE\CLOTRIMAZOLE
     Indication: CELLULITIS
     Dosage: UNK DF, QID
     Route: 061
  5. CLOTRIMAZOLE AND BETAMETHASONE [Suspect]
     Active Substance: BETAMETHASONE\CLOTRIMAZOLE
     Indication: FUNGAL INFECTION

REACTIONS (2)
  - Hyperglycaemia [Not Recovered/Not Resolved]
  - Dermatitis [Not Recovered/Not Resolved]

NARRATIVE: CASE EVENT DATE: 20160627
